FAERS Safety Report 4830281-1 (Version None)
Quarter: 2005Q4

REPORT INFORMATION
  Report Type: 
  Country: None (occurrence: None)
  Receive Date: 20051114
  Receipt Date: 20051103
  Transmission Date: 20060501
  Serious: Yes (Hospitalization, Other)
  Sender: FDA-Public Use
  Company Number: 2005143628

PATIENT
  Age: 43 Year
  Sex: Female

DRUGS (7)
  1. XANAX [Suspect]
     Indication: ANXIETY
     Dosage: 1.5 MG (0.5 MG, 3 IN 1 D), ORAL
     Route: 048
     Dates: start: 19950101, end: 20050425
  2. ORFIRIL - SLOW  RELEASE ^DESITIN^ (VALPROATE SODIUM) [Concomitant]
  3. BISOPROLOL FUMARATE [Concomitant]
  4. PANANGIN (ASPARTATE POTASSIUM, MAGNESIUM ASPARTATE) [Concomitant]
  5. HYPOTHIAZID (HYDROCHLOROTHIAZIDE) [Concomitant]
  6. WELLBUTRIN SR [Concomitant]
  7. MYDETON (TOLPERISONE HYDROCHLORIDE) [Concomitant]

REACTIONS (3)
  - ANXIETY [None]
  - CONDITION AGGRAVATED [None]
  - THERAPEUTIC RESPONSE UNEXPECTED WITH DRUG SUBSTITUTION [None]
